FAERS Safety Report 10856178 (Version 2)
Quarter: 2015Q1

REPORT INFORMATION
  Report Type: Report from Study
  Country: US (occurrence: US)
  Receive Date: 20150223
  Receipt Date: 20150326
  Transmission Date: 20150721
  Serious: Yes (Other)
  Sender: FDA-Public Use
  Company Number: US-ELI_LILLY_AND_COMPANY-US201502006639

PATIENT
  Age: 76 Year
  Sex: Male

DRUGS (1)
  1. PRASUGREL HYDROCHLORIDE [Suspect]
     Active Substance: PRASUGREL HYDROCHLORIDE
     Indication: STENT PLACEMENT
     Dosage: 10 MG, QD
     Route: 048
     Dates: start: 201005

REACTIONS (13)
  - Pain [Unknown]
  - Urinary retention [Unknown]
  - Proctalgia [Unknown]
  - Haemorrhage [Unknown]
  - Pollakiuria [Unknown]
  - Rectal haemorrhage [Unknown]
  - Device occlusion [Recovered/Resolved]
  - Dysuria [Unknown]
  - Urinary bladder haemorrhage [Unknown]
  - Urine output decreased [Unknown]
  - Drug dispensing error [Unknown]
  - Haemorrhage urinary tract [Unknown]
  - Urinary tract obstruction [Recovered/Resolved]

NARRATIVE: CASE EVENT DATE: 201406
